FAERS Safety Report 25507188 (Version 2)
Quarter: 2025Q3

REPORT INFORMATION
  Report Type: Spontaneous
  Country: JP (occurrence: JP)
  Receive Date: 20250703
  Receipt Date: 20250713
  Transmission Date: 20251020
  Serious: Yes (Hospitalization)
  Sender: GLAXOSMITHKLINE
  Company Number: JP-GSKNCCC-Case-02410740_AE-100234

PATIENT
  Sex: Female

DRUGS (1)
  1. TRELEGY ELLIPTA [Suspect]
     Active Substance: FLUTICASONE FUROATE\UMECLIDINIUM BROMIDE\VILANTEROL TRIFENATATE
     Indication: Dyspnoea

REACTIONS (3)
  - Hospitalisation [Unknown]
  - Cough [Unknown]
  - Productive cough [Unknown]
